FAERS Safety Report 15012383 (Version 2)
Quarter: 2018Q2

REPORT INFORMATION
  Report Type: Spontaneous
  Country: US (occurrence: US)
  Receive Date: 20180614
  Receipt Date: 20180625
  Transmission Date: 20180711
  Serious: Yes (Hospitalization, Other)
  Sender: FDA-Public Use
  Company Number: US-OTSUKA-2018_015556

PATIENT
  Sex: Male

DRUGS (2)
  1. ABILIFY [Suspect]
     Active Substance: ARIPIPRAZOLE
     Indication: MAJOR DEPRESSION
  2. ABILIFY [Suspect]
     Active Substance: ARIPIPRAZOLE
     Indication: BIPOLAR DISORDER
     Dosage: 20 MG, QD
     Route: 065
     Dates: start: 2008, end: 2018

REACTIONS (11)
  - Suicide attempt [Not Recovered/Not Resolved]
  - Divorced [Unknown]
  - Suicidal ideation [Not Recovered/Not Resolved]
  - Gambling disorder [Not Recovered/Not Resolved]
  - Economic problem [Unknown]
  - Compulsive shopping [Not Recovered/Not Resolved]
  - Injury [Unknown]
  - Emotional distress [Unknown]
  - Loss of employment [Unknown]
  - Mental disorder [Unknown]
  - Neuropsychiatric symptoms [Unknown]
